FAERS Safety Report 15469384 (Version 1)
Quarter: 2018Q4

REPORT INFORMATION
  Report Type: Spontaneous
  Country: HR (occurrence: HR)
  Receive Date: 20181005
  Receipt Date: 20181005
  Transmission Date: 20190205
  Serious: Yes (Hospitalization)
  Sender: FDA-Public Use
  Company Number: HR-MYLANLABS-2018M1073182

PATIENT
  Age: 8 Year
  Sex: Male
  Weight: 28 kg

DRUGS (1)
  1. DALSY SIRUP [Suspect]
     Active Substance: IBUPROFEN
     Indication: ALLERGY TEST
     Dosage: 20 MG/ML; POJEDINANA DOZA: 140 MG PER OS ( 5 MG/KG )
     Route: 048
     Dates: start: 20180216, end: 20180216

REACTIONS (2)
  - Pruritus genital [Recovered/Resolved]
  - Oedema genital [Recovered/Resolved]

NARRATIVE: CASE EVENT DATE: 20180216
